FAERS Safety Report 6276095-X (Version None)
Quarter: 2009Q3

REPORT INFORMATION
  Report Type: 
  Country: None (occurrence: None)
  Receive Date: 20090722
  Receipt Date: 20071212
  Transmission Date: 20100115
  Serious: Yes (Other)
  Sender: FDA-Public Use
  Company Number: US-ASTRAZENECA-2007UW13880

PATIENT
  Age: 391 Month
  Sex: Female

DRUGS (30)
  1. SEROQUEL [Suspect]
     Indication: SLEEP DISORDER
     Dosage: 1200 MG
     Route: 048
     Dates: start: 20020113
  2. SEROQUEL [Suspect]
     Dosage: 100-300 MG
     Route: 048
     Dates: start: 20030212
  3. TOPROL-XL [Concomitant]
     Dates: start: 20020507
  4. ALPRAZOLAM [Concomitant]
     Dosage: 0.5-2 MG
     Dates: start: 20021104
  5. CLONIDINE [Concomitant]
     Dosage: 0.1-0.2 MG
     Dates: start: 20050702
  6. LOTREL [Concomitant]
     Dosage: 5-20 MG
     Dates: start: 20021104
  7. GLIMEPIRIDE [Concomitant]
     Dates: start: 20060720
  8. REQUIP [Concomitant]
     Dates: start: 20060425
  9. TRILEPTAL [Concomitant]
     Dates: start: 20060718
  10. ABILIFY [Concomitant]
     Dosage: 20-30 MG
     Dates: start: 20051228
  11. AMBIEN [Concomitant]
     Dosage: 6.25-10 MG
     Dates: start: 20040915
  12. LIPITOR [Concomitant]
     Dates: start: 20060804
  13. NEXIUM [Concomitant]
     Dates: start: 20060502
  14. ACTOS [Concomitant]
     Dosage: 15-30 MG
     Dates: start: 20060807
  15. LEXAPRO [Concomitant]
     Dosage: 10-20 MG
     Dates: start: 20021003
  16. PREMARIN [Concomitant]
     Dates: start: 20061031
  17. CARISOPRODOL [Concomitant]
     Dates: start: 20061031
  18. MONOPRIL [Concomitant]
     Dosage: 20/12.5
     Dates: start: 20020903
  19. GUAIFENEX LA [Concomitant]
     Dates: start: 20020920
  20. BUSPIRONE HCL [Concomitant]
     Dates: start: 20021003
  21. DEPAKOTE [Concomitant]
     Dates: start: 20030116
  22. ESKALITH CR [Concomitant]
     Dosage: 300-450 MG
     Dates: start: 20030603
  23. CEPHALEXIN [Concomitant]
     Dates: start: 20030525
  24. ROZEREM [Concomitant]
     Dates: start: 20060525
  25. FUROSEMIDE [Concomitant]
     Dates: start: 20030702
  26. DIAZEPAM [Concomitant]
     Dates: start: 20030708
  27. METRONIDAZOLE [Concomitant]
     Dates: start: 20030807
  28. LEVAQUIN [Concomitant]
     Dates: start: 20030829
  29. GEODON [Concomitant]
     Dates: start: 20040915
  30. LUNESTA [Concomitant]
     Dates: start: 20040915

REACTIONS (2)
  - DIABETES MELLITUS [None]
  - PANCREATITIS CHRONIC [None]
